FAERS Safety Report 4692502-8 (Version None)
Quarter: 2005Q2

REPORT INFORMATION
  Report Type: 
  Country: None (occurrence: None)
  Receive Date: 20050613
  Receipt Date: 20050511
  Transmission Date: 20051028
  Serious: No
  Sender: FDA-Public Use
  Company Number: 2005-01060

PATIENT
  Age: 69 Year
  Sex: Male
  Weight: 68 kg

DRUGS (4)
  1. VELCADE [Suspect]
     Indication: MULTIPLE MYELOMA
     Dates: start: 20050201
  2. THALIDOMIDE [Concomitant]
  3. DEXAMETHASONE [Concomitant]
  4. NEURONTIN [Concomitant]

REACTIONS (1)
  - ALOPECIA [None]
